FAERS Safety Report 24268988 (Version 2)
Quarter: 2024Q3

REPORT INFORMATION
  Report Type: Spontaneous
  Country: TW (occurrence: TW)
  Receive Date: 20240830
  Receipt Date: 20240905
  Transmission Date: 20241016
  Serious: Yes (Death, Life-Threatening, Other)
  Sender: MERCK
  Company Number: TW-009507513-2408TWN009943

PATIENT
  Age: 87 Year
  Sex: Female
  Weight: 46.8 kg

DRUGS (6)
  1. KEYTRUDA [Suspect]
     Active Substance: PEMBROLIZUMAB
     Indication: Malignant melanoma of sites other than skin
     Dosage: 100 MILLIGRAM, Q3W
     Dates: start: 20240402, end: 20240402
  2. KEYTRUDA [Suspect]
     Active Substance: PEMBROLIZUMAB
     Dosage: 100 MILLIGRAM, Q3W, 2ND CYCLE
     Dates: start: 20240507, end: 20240507
  3. KEYTRUDA [Suspect]
     Active Substance: PEMBROLIZUMAB
     Dosage: 100 MILLIGRAM, Q3W, 3RD CYCLE
     Dates: start: 20240528, end: 20240528
  4. KEYTRUDA [Suspect]
     Active Substance: PEMBROLIZUMAB
     Dosage: 100 MILLIGRAM, Q3W, 4TH CYCLE
     Dates: start: 20240618, end: 20240618
  5. KEYTRUDA [Suspect]
     Active Substance: PEMBROLIZUMAB
     Dosage: 100 MILLIGRAM, Q3W, 5TH CYCLE
     Dates: start: 20240709, end: 20240709
  6. METHYLPREDNISOLONE [Suspect]
     Active Substance: METHYLPREDNISOLONE
     Dosage: 40 MILLIGRAM, Q12H, STRENGTH: 40 MG/VIAL
     Dates: start: 20240721, end: 20240726

REACTIONS (4)
  - Death [Fatal]
  - Hepatitis acute [Unknown]
  - Jaundice [Unknown]
  - Underdose [Unknown]

NARRATIVE: CASE EVENT DATE: 20240712
